FAERS Safety Report 4370952-7 (Version None)
Quarter: 2004Q2

REPORT INFORMATION
  Report Type: 
  Country: None (occurrence: None)
  Receive Date: 20040603
  Receipt Date: 20040603
  Transmission Date: 20050107
  Serious: Yes (Other)
  Sender: FDA-Public Use
  Company Number: None

PATIENT
  Sex: Female
  Weight: 84.8226 kg

DRUGS (2)
  1. FLUOXETINE 40 MG RX #6172091 [Suspect]
     Indication: BIPOLAR DISORDER
     Dosage: 40 MG PO QD
     Route: 048
     Dates: start: 20030206, end: 20040401
  2. FLUOXETINE 40 MG RX # 6150571 [Suspect]
     Indication: BIPOLAR DISORDER
     Dosage: 40 MG PO QD
     Route: 048
     Dates: start: 20040430, end: 20040530

REACTIONS (4)
  - ABDOMINAL DISCOMFORT [None]
  - ABDOMINAL PAIN [None]
  - CONSTIPATION [None]
  - DIARRHOEA [None]
